FAERS Safety Report 5964280-3 (Version None)
Quarter: 2008Q4

REPORT INFORMATION
  Report Type: 
  Country: None (occurrence: None)
  Receive Date: 20081124
  Receipt Date: 20081116
  Transmission Date: 20090506
  Serious: Yes (Other)
  Sender: FDA-Public Use
  Company Number: BR-PFIZER INC-2008097148

PATIENT
  Sex: Male
  Weight: 46 kg

DRUGS (4)
  1. GEODON [Suspect]
     Indication: SCHIZOPHRENIA
     Dates: start: 20080501
  2. GEODON [Suspect]
     Indication: DEPRESSION
  3. PURAN T4 [Concomitant]
  4. DIAZEPAM [Concomitant]

REACTIONS (3)
  - MUSCLE ATROPHY [None]
  - TREMOR [None]
  - WEIGHT DECREASED [None]
